FAERS Safety Report 4651913-7 (Version None)
Quarter: 2005Q2

REPORT INFORMATION
  Report Type: 
  Country: None (occurrence: None)
  Receive Date: 20050504
  Receipt Date: 20050420
  Transmission Date: 20051028
  Serious: Yes (Other)
  Sender: FDA-Public Use
  Company Number: PHNR2005AU00796

PATIENT
  Age: 46 None
  Sex: Female

DRUGS (5)
  1. ZOMETA [Suspect]
     Indication: BREAST CANCER
     Dosage: 4MG MONTHLY
     Route: 042
  2. AREDIA [Suspect]
     Dosage: 90 MG
     Route: 042
  3. PACLITAXEL [Concomitant]
  4. DEXMETHSONE [Concomitant]
  5. WARFARIN [Concomitant]

REACTIONS (2)
  - ASEPTIC NECROSIS BONE [None]
  - TOOTH EXTRACTION [None]
